FAERS Safety Report 16419940 (Version 4)
Quarter: 2020Q3

REPORT INFORMATION
  Report Type: Report from Study
  Country: HK (occurrence: HK)
  Receive Date: 20190612
  Receipt Date: 20190716
  Transmission Date: 20201104
  Serious: Yes (Death, Hospitalization)
  Sender: FDA-Public Use
  Company Number: HK-PFIZER INC-2019249663

PATIENT
  Age: 56 Year
  Sex: Female
  Weight: 37 kg

DRUGS (1)
  1. TALAZOPARIB. [Suspect]
     Active Substance: TALAZOPARIB
     Indication: PHYLLODES TUMOUR
     Dosage: 1 MG, DAILY
     Route: 048
     Dates: start: 20190517, end: 20190609

REACTIONS (4)
  - Pancytopenia [Recovered/Resolved]
  - Pyrexia [Recovered/Resolved]
  - Pneumonia [Fatal]
  - Febrile neutropenia [Recovered/Resolved]

NARRATIVE: CASE EVENT DATE: 20190609
